FAERS Safety Report 13876113 (Version 1)
Quarter: 2017Q3

REPORT INFORMATION
  Report Type: Spontaneous
  Country: US (occurrence: US)
  Receive Date: 20170817
  Receipt Date: 20170817
  Transmission Date: 20171127
  Serious: No
  Sender: FDA-Public Use
  Company Number: US-PFIZER INC-2017353665

PATIENT
  Age: 72 Year
  Sex: Female

DRUGS (2)
  1. LYRICA [Suspect]
     Active Substance: PREGABALIN
     Dosage: UNK
  2. DECADRON [Suspect]
     Active Substance: DEXAMETHASONE
     Dosage: UNK

REACTIONS (1)
  - Drug hypersensitivity [Unknown]
